FAERS Safety Report 8773949 (Version 2)
Quarter: 2012Q4

REPORT INFORMATION
  Report Type: 
  Country: FR (occurrence: FR)
  Receive Date: 20120908
  Receipt Date: 20120925
  Transmission Date: 20130627
  Serious: Yes (Hospitalization)
  Sender: FDA-Public Use
  Company Number: FR-ABBOTT-12P-056-0976389-00

PATIENT
  Age: 86 Year
  Sex: Female

DRUGS (9)
  1. DEPAKINE [Suspect]
     Indication: LOSS OF CONSCIOUSNESS
     Route: 048
     Dates: start: 20120604, end: 20120627
  2. TARGOCID [Suspect]
     Indication: SEPSIS
     Route: 042
     Dates: start: 20120620, end: 20120623
  3. TARGOCID [Suspect]
     Dosage: 400 mg daily
     Route: 048
     Dates: start: 20120624, end: 20120628
  4. TARGOCID [Suspect]
     Route: 048
     Dates: start: 20120630, end: 20120701
  5. FLAGYL [Suspect]
     Indication: SEPSIS
     Route: 042
     Dates: start: 20120620, end: 20120620
  6. FLAGYL [Suspect]
     Route: 042
     Dates: start: 20120621, end: 20120627
  7. FLAGYL [Suspect]
     Dosage: 500 mg daily
     Route: 048
     Dates: start: 20120627, end: 20120702
  8. GENTAMICIN [Suspect]
     Indication: SEPSIS
     Dosage: 250 mg daily
     Route: 042
     Dates: start: 20120620
  9. PRISTINAMYCIN [Suspect]
     Indication: ERYSIPELAS
     Dosage: 3 grams daily
     Route: 048
     Dates: start: 20120619, end: 20120620

REACTIONS (1)
  - Dermatitis exfoliative [Unknown]
